FAERS Safety Report 25499436 (Version 1)
Quarter: 2025Q3

REPORT INFORMATION
  Report Type: Spontaneous
  Country: EU (occurrence: EU)
  Receive Date: 20250701
  Receipt Date: 20250701
  Transmission Date: 20251020
  Serious: Yes (Hospitalization)
  Sender: TEVA
  Company Number: EU-SANDOZ-SDZ2025DE040555

PATIENT
  Sex: Male

DRUGS (6)
  1. ETORICOXIB [Suspect]
     Active Substance: ETORICOXIB
     Indication: Axial spondyloarthritis
     Route: 065
     Dates: start: 20170428, end: 20221207
  2. ETORICOXIB [Suspect]
     Active Substance: ETORICOXIB
     Indication: Axial spondyloarthritis
     Route: 065
     Dates: start: 20170428, end: 20181120
  3. DICLOFENAC [Suspect]
     Active Substance: DICLOFENAC
     Indication: Axial spondyloarthritis
     Route: 065
     Dates: end: 20240501
  4. COSENTYX [Suspect]
     Active Substance: SECUKINUMAB
     Indication: Axial spondyloarthritis
     Route: 065
     Dates: start: 20201207, end: 20220306
  5. COSENTYX [Suspect]
     Active Substance: SECUKINUMAB
     Indication: Axial spondyloarthritis
     Route: 065
     Dates: start: 20220307
  6. COSENTYX [Suspect]
     Active Substance: SECUKINUMAB
     Indication: Axial spondyloarthritis
     Route: 065
     Dates: start: 20180622, end: 20201025

REACTIONS (3)
  - Osteoarthritis [Unknown]
  - Device related infection [Unknown]
  - Device related infection [Unknown]

NARRATIVE: CASE EVENT DATE: 20201125
